FAERS Safety Report 18560089 (Version 1)
Quarter: 2020Q4

REPORT INFORMATION
  Report Type: Spontaneous
  Country: US (occurrence: US)
  Receive Date: 20201130
  Receipt Date: 20201130
  Transmission Date: 20210114
  Serious: No
  Sender: FDA-Public Use
  Company Number: US-SA-2020SA299045

PATIENT

DRUGS (1)
  1. DUPIXENT [Suspect]
     Active Substance: DUPILUMAB
     Dosage: 300 MG, QOW

REACTIONS (6)
  - Skin exfoliation [Unknown]
  - Movement disorder [Unknown]
  - Slow speech [Unknown]
  - Musculoskeletal disorder [Unknown]
  - Disturbance in attention [Unknown]
  - Unevaluable event [Unknown]
